FAERS Safety Report 6386586-9 (Version None)
Quarter: 2009Q4

REPORT INFORMATION
  Report Type: 
  Country: None (occurrence: None)
  Receive Date: 20091002
  Receipt Date: 20090414
  Transmission Date: 20100525
  Serious: No
  Sender: FDA-Public Use
  Company Number: US-ASTRAZENECA-2009UW09360

PATIENT
  Age: 19725 Day
  Sex: Female

DRUGS (1)
  1. ARIMIDEX [Suspect]
     Indication: BREAST CANCER
     Route: 048
     Dates: start: 20090110

REACTIONS (8)
  - ALOPECIA [None]
  - ASTHENIA [None]
  - BONE PAIN [None]
  - DEPRESSION [None]
  - DIARRHOEA [None]
  - DYSPHONIA [None]
  - INFLUENZA [None]
  - WEIGHT INCREASED [None]
